FAERS Safety Report 5107781-2 (Version None)
Quarter: 2006Q3

REPORT INFORMATION
  Report Type: 
  Country: None (occurrence: None)
  Receive Date: 20060919
  Receipt Date: 20060503
  Transmission Date: 20061208
  Serious: Yes (Other)
  Sender: FDA-Public Use
  Company Number: GBWYE596203MAY06

PATIENT
  Sex: Female
  Weight: 63.4 kg

DRUGS (9)
  1. ENBREL [Suspect]
     Indication: RHEUMATOID ARTHRITIS
     Dosage: 50 MG WEEKLY
     Route: 058
     Dates: start: 20020204
  2. FOLIC ACID [Concomitant]
     Indication: PROPHYLAXIS
     Dosage: 5MG DAILY
     Route: 048
     Dates: start: 20000101
  3. PREDNISOLONE [Concomitant]
     Indication: RHEUMATOID ARTHRITIS
     Route: 048
     Dates: start: 19900101
  4. ACETAMINOPHEN W/ CODEINE [Concomitant]
     Indication: ARTHRALGIA
     Dosage: 2 TABLETS EVERY 6 HOURS, AS REQUIRED
     Route: 048
     Dates: start: 20020101
  5. CALCICHEW-D3 [Concomitant]
     Indication: OSTEOPOROSIS
     Route: 048
     Dates: start: 20040101
  6. BENDROFLUMETHIAZIDE [Concomitant]
     Indication: HYPERTENSION
     Route: 048
     Dates: start: 19960101
  7. VENTOLIN [Concomitant]
     Indication: ASTHMA
     Dosage: UNKNOWN DOSE, AS REQUIRED
     Route: 055
     Dates: start: 19900101
  8. METHOTREXATE [Concomitant]
     Indication: RHEUMATOID ARTHRITIS
     Dosage: 10 MG WEEKLY
     Route: 048
     Dates: start: 20000101
  9. ALENDRONATE SODIUM [Concomitant]
     Indication: OSTEOPOROSIS
     Dosage: 70MG WEEKLY
     Route: 048
     Dates: start: 20040101

REACTIONS (1)
  - HYPERGAMMAGLOBULINAEMIA BENIGN MONOCLONAL [None]
